FAERS Safety Report 11108808 (Version 4)
Quarter: 2018Q4

REPORT INFORMATION
  Report Type: Spontaneous
  Country: FR (occurrence: FR)
  Receive Date: 20150513
  Receipt Date: 20181108
  Transmission Date: 20190204
  Serious: Yes (Life-Threatening, Hospitalization, Other)
  Sender: FDA-Public Use
  Company Number: FR-AUROBINDO-AUR-APL-2015-04058

PATIENT
  Age: 50 Year
  Sex: Female
  Weight: 99 kg

DRUGS (5)
  1. ALPRAZOLAM. [Suspect]
     Active Substance: ALPRAZOLAM
     Dosage: 15G (DOSE MAXIMALE ING?R?E)
     Route: 048
     Dates: start: 20140601, end: 20140602
  2. ALPRAZOLAM. [Suspect]
     Active Substance: ALPRAZOLAM
     Indication: PRODUCT USED FOR UNKNOWN INDICATION
     Dosage: 15 G, UNK
     Route: 048
  3. THIOPENTAL INRESA [Suspect]
     Active Substance: THIOPENTAL
     Indication: STATUS EPILEPTICUS
     Dosage: 400MG EN BOLUS PUIS 40MG/H
     Route: 042
     Dates: start: 20140602, end: 20140603
  4. TRAMADOL. [Interacting]
     Active Substance: TRAMADOL
     Indication: PRODUCT USED FOR UNKNOWN INDICATION
     Dosage: 39 G, UNK
     Route: 048
     Dates: start: 20140601, end: 20140602
  5. ALCOHOL. [Concomitant]
     Active Substance: ALCOHOL
     Indication: PRODUCT USED FOR UNKNOWN INDICATION
     Dosage: UNK
     Route: 048

REACTIONS (21)
  - Respiratory arrest [Recovering/Resolving]
  - Cyanosis [Recovering/Resolving]
  - Coma [Recovered/Resolved with Sequelae]
  - Respiratory depression [Recovered/Resolved]
  - Conduction disorder [Recovering/Resolving]
  - Somnolence [Recovering/Resolving]
  - Partial seizures [Unknown]
  - Status epilepticus [Recovered/Resolved]
  - Toxicity to various agents [Recovering/Resolving]
  - Ejection fraction decreased [Recovered/Resolved]
  - Cardiogenic shock [Recovering/Resolving]
  - Mydriasis [Recovering/Resolving]
  - Condition aggravated [Recovering/Resolving]
  - Atrioventricular block [Recovering/Resolving]
  - Ventricular fibrillation [Recovered/Resolved with Sequelae]
  - Epilepsy [Recovering/Resolving]
  - Ventricular tachycardia [Recovered/Resolved]
  - Drug interaction [Recovering/Resolving]
  - Overdose [Recovered/Resolved]
  - Electrocardiogram QRS complex prolonged [Recovering/Resolving]
  - Haemodynamic instability [Recovering/Resolving]

NARRATIVE: CASE EVENT DATE: 20140602
